FAERS Safety Report 6918081-X (Version None)
Quarter: 2010Q3

REPORT INFORMATION
  Report Type: 
  Country: None (occurrence: None)
  Receive Date: 20100806
  Receipt Date: 20100726
  Transmission Date: 20110219
  Serious: Yes (Other)
  Sender: FDA-Public Use
  Company Number: 1000015016

PATIENT
  Age: 57 Year
  Sex: Female
  Weight: 58 kg

DRUGS (3)
  1. ESCITALOPRAM [Suspect]
     Indication: NEUROSIS
     Dosage: 5 MG (5 MG, 1 IN 1 D), ORAL
     Route: 048
     Dates: start: 20091222, end: 20100401
  2. ESTREVA (GEL) [Concomitant]
  3. PROGESTERONE [Concomitant]

REACTIONS (7)
  - ABDOMINAL PAIN [None]
  - CONSTIPATION [None]
  - HAEMORRHOIDS [None]
  - METRORRHAGIA [None]
  - OFF LABEL USE [None]
  - PROCTITIS [None]
  - RECTAL HAEMORRHAGE [None]
